FAERS Safety Report 9298782 (Version 1)
Quarter: 2013Q2

REPORT INFORMATION
  Report Type: Report from Study
  Country: ES (occurrence: ES)
  Receive Date: 20130520
  Receipt Date: 20130520
  Transmission Date: 20140414
  Serious: Yes (Other)
  Sender: FDA-Public Use
  Company Number: ES-GLAXOSMITHKLINE-B0892923A

PATIENT
  Sex: Male

DRUGS (4)
  1. KETOCONAZOLE [Suspect]
     Indication: PROSTATE CANCER METASTATIC
     Dosage: 200MG THREE TIMES PER DAY
     Route: 065
  2. PREDNISOLONE [Suspect]
     Indication: PROSTATE CANCER METASTATIC
     Dosage: 10MG PER DAY
     Route: 065
  3. LUTEINIZING HORMONE RELEASING-HORMONE AGONISTS [Suspect]
     Indication: PROSTATE CANCER METASTATIC
     Route: 065
  4. DOCETAXEL [Concomitant]
     Indication: PROSTATE CANCER METASTATIC
     Dosage: 75MGM2 CYCLIC
     Route: 065

REACTIONS (1)
  - Pulmonary embolism [Unknown]
